FAERS Safety Report 4291764-9 (Version None)
Quarter: 2004Q1

REPORT INFORMATION
  Report Type: 
  Country: None (occurrence: None)
  Receive Date: 20040210
  Receipt Date: 20040210
  Transmission Date: 20041129
  Serious: Yes (Hospitalization)
  Sender: FDA-Public Use
  Company Number: None

PATIENT
  Age: 54 Year
  Sex: Female

DRUGS (3)
  1. CELECOXIB [Suspect]
     Indication: COLON CANCER METASTATIC
     Dosage: CELECOXIB 400 MG I BID
     Dates: start: 20030618, end: 20040205
  2. IRINOTECAN [Suspect]
  3. CAPECITABINE [Suspect]
     Dosage: CAPECITABINE CAPECITABI

REACTIONS (1)
  - DYSPNOEA [None]
